FAERS Safety Report 21150200 (Version 1)
Quarter: 2022Q3

REPORT INFORMATION
  Report Type: Report from Study
  Country: US (occurrence: US)
  Receive Date: 20220729
  Receipt Date: 20220729
  Transmission Date: 20221026
  Serious: Yes (Death)
  Sender: FDA-Public Use
  Company Number: US-Taiho Oncology Inc-EU-2022-01756

PATIENT
  Age: 54 Year
  Sex: Male
  Weight: 52.210 kg

DRUGS (10)
  1. LONSURF [Suspect]
     Active Substance: TIPIRACIL HYDROCHLORIDE\TRIFLURIDINE
     Indication: Colon cancer
     Dosage: CYCLE UNKNOWN
     Route: 048
     Dates: start: 20220620
  2. LONSURF [Suspect]
     Active Substance: TIPIRACIL HYDROCHLORIDE\TRIFLURIDINE
     Indication: Gastric cancer
     Dosage: CURRENT CYCLE UNKNOWN
     Route: 048
     Dates: start: 20220618
  3. BACLOFEN [Concomitant]
     Active Substance: BACLOFEN
  4. UNSPECIFIED INGREDIENT [Concomitant]
     Active Substance: UNSPECIFIED INGREDIENT
     Dosage: SOL
  5. GAS-X [Concomitant]
     Active Substance: DIMETHICONE
     Dosage: EX-STR
  6. HYDROCODONE BITARTRATE AND ACETAMINOPHEN [Concomitant]
     Active Substance: ACETAMINOPHEN\HYDROCODONE BITARTRATE
     Dosage: 5-325MG
  7. HYDROMORPHONE [Concomitant]
     Active Substance: HYDROMORPHONE
  8. LISINOPRIL [Concomitant]
     Active Substance: LISINOPRIL
  9. ONDANSETRON [Concomitant]
     Active Substance: ONDANSETRON
  10. STOOL SOFTENER (DOCUSATE) [Concomitant]
     Active Substance: DOCUSATE
     Dosage: 8.6-50MG

REACTIONS (5)
  - Death [Fatal]
  - Disease progression [Unknown]
  - Swelling [Unknown]
  - Dysuria [Not Recovered/Not Resolved]
  - Abdominal distension [Not Recovered/Not Resolved]

NARRATIVE: CASE EVENT DATE: 20220706
